FAERS Safety Report 6420452-5 (Version None)
Quarter: 2009Q4

REPORT INFORMATION
  Report Type: 
  Country: None (occurrence: None)
  Receive Date: 20091021
  Receipt Date: 20090814
  Transmission Date: 20100525
  Serious: No
  Sender: FDA-Public Use
  Company Number: ALL1-2009-02340

PATIENT
  Age: 30 Year
  Sex: Male
  Weight: 99.8 kg

DRUGS (6)
  1. VYVANSE [Suspect]
     Indication: DISTURBANCE IN ATTENTION
     Dosage: 50 MG, 1X/DAY:QD, ORAL ; 20 MG, 1X/DAY:QD, ORAL
     Route: 048
     Dates: start: 20090701, end: 20090701
  2. VYVANSE [Suspect]
     Indication: DISTURBANCE IN ATTENTION
     Dosage: 50 MG, 1X/DAY:QD, ORAL ; 20 MG, 1X/DAY:QD, ORAL
     Route: 048
     Dates: start: 20090701
  3. PROZAC [Suspect]
     Indication: BIPOLAR DISORDER
     Dosage: 20 MG, 1X/DAY:QD, ORAL ; 10 MG, 1X/DAY:QD, ORAL
     Route: 048
     Dates: start: 20050101, end: 20090701
  4. PROZAC [Suspect]
     Indication: BIPOLAR DISORDER
     Dosage: 20 MG, 1X/DAY:QD, ORAL ; 10 MG, 1X/DAY:QD, ORAL
     Route: 048
     Dates: start: 20090701, end: 20090701
  5. MELATONIN (MELATONIN) [Concomitant]
  6. SEROQUEL [Concomitant]

REACTIONS (5)
  - DECREASED APPETITE [None]
  - DRUG INTERACTION [None]
  - MANIA [None]
  - NAUSEA [None]
  - WEIGHT DECREASED [None]
